FAERS Safety Report 9702156 (Version 3)
Quarter: 2014Q2

REPORT INFORMATION
  Report Type: Spontaneous
  Country: US (occurrence: None)
  Receive Date: 20131119
  Receipt Date: 20140516
  Transmission Date: 20141212
  Serious: Yes (Other)
  Sender: FDA-Public Use
  Company Number: 2009184

PATIENT
  Age: 43 Year
  Sex: Male
  Weight: 68.18 kg

DRUGS (1)
  1. BUPIVACAINE HCL [Suspect]
     Indication: PAIN
     Dosage: INJECTION OF LEFT SUBACROMIAL BURSA
     Dates: start: 20131029

REACTIONS (2)
  - Pain [None]
  - Staphylococcal infection [None]
